FAERS Safety Report 7223474-X (Version None)
Quarter: 2011Q1

REPORT INFORMATION
  Report Type: 
  Country: None (occurrence: None)
  Receive Date: 20110112
  Receipt Date: 20100818
  Transmission Date: 20110831
  Serious: No
  Sender: FDA-Public Use
  Company Number: US-ALLERGAN-1009276US

PATIENT
  Age: 37 Year
  Sex: Female
  Weight: 71.655 kg

DRUGS (2)
  1. ONE A DAY VITAMIN [Concomitant]
     Route: 048
  2. RESTASIS [Suspect]
     Indication: DRY EYE
     Dosage: 1 GTT, BID
     Dates: start: 20100707, end: 20100715

REACTIONS (2)
  - VISION BLURRED [None]
  - VITREOUS FLOATERS [None]
